FAERS Safety Report 17460388 (Version 1)
Quarter: 2020Q1

REPORT INFORMATION
  Report Type: Spontaneous
  Country: US (occurrence: US)
  Receive Date: 20200225
  Receipt Date: 20200225
  Transmission Date: 20200409
  Serious: Yes (Disabling, Other)
  Sender: FDA-Public Use
  Company Number: None

PATIENT
  Age: 36 Year
  Sex: Female
  Weight: 92.25 kg

DRUGS (2)
  1. IBUPROFEN. [Concomitant]
     Active Substance: IBUPROFEN
  2. LUTERA [Suspect]
     Active Substance: ETHINYL ESTRADIOL\LEVONORGESTREL
     Indication: MENSTRUATION IRREGULAR
     Dosage: ?          OTHER STRENGTH:MG - MCG;QUANTITY:1 TABLET(S);?
     Route: 048
     Dates: start: 20200106, end: 20200127

REACTIONS (1)
  - Thrombophlebitis superficial [None]

NARRATIVE: CASE EVENT DATE: 20200119
